FAERS Safety Report 19022297 (Version 2)
Quarter: 2021Q1

REPORT INFORMATION
  Report Type: Report from Study
  Country: US (occurrence: US)
  Receive Date: 20210317
  Receipt Date: 20210322
  Transmission Date: 20210420
  Serious: Yes (Death)
  Sender: FDA-Public Use
  Company Number: US-PFIZER INC-2021262073

PATIENT

DRUGS (9)
  1. IBRUTINIB [Suspect]
     Active Substance: IBRUTINIB
     Indication: B-CELL LYMPHOMA
     Dosage: 560 MG, DAILY, (14D IN A WINDOW)
  2. ISAVUCONAZONIUM SULFATE [Suspect]
     Active Substance: ISAVUCONAZONIUM SULFATE
     Indication: B-CELL LYMPHOMA
     Dosage: 200 MG, 2X/DAY, (3D PRIOR TO IBRUTINIB)
  3. TEMOZOLOMIDE. [Suspect]
     Active Substance: TEMOZOLOMIDE
     Indication: B-CELL LYMPHOMA
     Dosage: UNK UNK, CYCLIC, (4 CYCLES EVERY 21D)
  4. LIPOSOMAL DOXORUBICIN HYDROCHLORIDE [Suspect]
     Active Substance: DOXORUBICIN HYDROCHLORIDE
     Indication: B-CELL LYMPHOMA
     Dosage: UNK UNK, CYCLIC, (4 CYCLES EVERY 21D)
  5. DEXAMETHASONE. [Suspect]
     Active Substance: DEXAMETHASONE
     Indication: B-CELL LYMPHOMA
     Dosage: UNK UNK, CYCLIC, (4 CYCLES EVERY 21D)
  6. ISAVUCONAZONIUM SULFATE [Suspect]
     Active Substance: ISAVUCONAZONIUM SULFATE
     Dosage: 200 MG, DAILY
  7. ETOPOSIDE. [Suspect]
     Active Substance: ETOPOSIDE
     Indication: B-CELL LYMPHOMA
     Dosage: UNK UNK, CYCLIC, (4 CYCLES EVERY 21D)
  8. RITUXIMAB. [Suspect]
     Active Substance: RITUXIMAB
     Indication: B-CELL LYMPHOMA
     Dosage: UNK UNK, CYCLIC, (4 CYCLES EVERY 21D)
  9. CYTARABINE. [Suspect]
     Active Substance: CYTARABINE
     Indication: B-CELL LYMPHOMA
     Dosage: UNK UNK, CYCLIC, (4 CYCLES EVERY 21D)
     Route: 037

REACTIONS (1)
  - Toxicity to various agents [Fatal]
